FAERS Safety Report 5467481-6 (Version None)
Quarter: 2007Q3

REPORT INFORMATION
  Report Type: 
  Country: None (occurrence: None)
  Receive Date: 20070925
  Receipt Date: 20070918
  Transmission Date: 20080115
  Serious: Yes (Other)
  Sender: FDA-Public Use
  Company Number: US-PFIZER INC-2007078272

PATIENT
  Sex: Female
  Weight: 131.36 kg

DRUGS (8)
  1. CELEBREX [Suspect]
     Indication: RHEUMATOID ARTHRITIS
  2. CARDIAC THERAPY [Concomitant]
  3. NITROGLYCERIN [Concomitant]
  4. ANTIHYPERTENSIVES [Concomitant]
  5. INSULIN [Concomitant]
  6. PREVACID [Concomitant]
  7. PROZAC [Concomitant]
  8. ASPIRIN [Concomitant]

REACTIONS (4)
  - ANGINA PECTORIS [None]
  - ARRHYTHMIA [None]
  - CARDIAC FAILURE [None]
  - HYPERTENSION [None]
